FAERS Safety Report 12072212 (Version 1)
Quarter: 2016Q1

REPORT INFORMATION
  Report Type: Spontaneous
  Country: US (occurrence: None)
  Receive Date: 20160211
  Receipt Date: 20160211
  Transmission Date: 20160526
  Serious: Yes (Hospitalization)
  Sender: FDA-Public Use
  Company Number: None

PATIENT
  Age: 73 Year
  Sex: Male
  Weight: 68.6 kg

DRUGS (2)
  1. LEUPROLIDE ACETATE. [Suspect]
     Active Substance: LEUPROLIDE ACETATE
     Dates: end: 20151130
  2. CASODEX [Suspect]
     Active Substance: BICALUTAMIDE
     Dates: end: 20131011

REACTIONS (2)
  - Coronary artery occlusion [None]
  - Condition aggravated [None]

NARRATIVE: CASE EVENT DATE: 20160115
